FAERS Safety Report 7870717-5 (Version None)
Quarter: 2011Q3

REPORT INFORMATION
  Report Type: 
  Country: None (occurrence: None)
  Receive Date: 20110923
  Receipt Date: 20110902
  Transmission Date: 20111222
  Serious: Yes (Life-Threatening, Hospitalization)
  Sender: FDA-Public Use
  Company Number: 1032221

PATIENT
  Age: 51 Year
  Sex: Male
  Weight: 78.3 kg

DRUGS (3)
  1. NIPENT [Suspect]
     Indication: CHRONIC LYMPHOCYTIC LEUKAEMIA
     Dosage: 4 MG/M2 X 1 DAY ON WEEKS 1,5,9,13,17,21
     Dates: start: 20110307
  2. CYCLOPHOSPHAMIDE [Suspect]
     Indication: CHRONIC LYMPHOCYTIC LEUKAEMIA
     Dosage: 600 MG/M2 X 1 DAY ON WEEKS 1,5,9,13,17,21
     Dates: start: 20110307
  3. RITUXAN [Suspect]
     Indication: CHRONIC LYMPHOCYTIC LEUKAEMIA
     Dosage: 375 MG/M2 ON WEEKS 1,5,9,13,17,21
     Dates: start: 20110307

REACTIONS (1)
  - BLOOD BILIRUBIN INCREASED [None]
